FAERS Safety Report 11417473 (Version 1)
Quarter: 2015Q3

REPORT INFORMATION
  Report Type: Spontaneous
  Country: US (occurrence: US)
  Receive Date: 20150825
  Receipt Date: 20150825
  Transmission Date: 20151125
  Serious: No
  Sender: FDA-Public Use
  Company Number: US-TARO-2015TAR00529

PATIENT
  Age: 67 Year
  Sex: Female
  Weight: 77.98 kg

DRUGS (4)
  1. CLOBETASOL PROPIONATE CREAM USP 0.05% [Suspect]
     Active Substance: CLOBETASOL PROPIONATE
     Indication: PSORIASIS
     Dosage: UNK UNK, 2X/DAY
     Route: 061
     Dates: start: 20150330, end: 20150412
  2. CLOBETASOL PROPIONATE CREAM USP 0.05% [Suspect]
     Active Substance: CLOBETASOL PROPIONATE
     Dosage: UNK UNK, 2X/DAY
     Route: 061
     Dates: start: 20150525
  3. SYNTHROID [Concomitant]
     Active Substance: LEVOTHYROXINE SODIUM
     Dosage: 125 ?G, 1X/DAY
  4. CLOBETASOL PROPIONATE CREAM USP 0.05% [Suspect]
     Active Substance: CLOBETASOL PROPIONATE
     Dosage: UNK UNK, 2X/DAY
     Route: 061
     Dates: start: 20150427, end: 20150510

REACTIONS (2)
  - Product substitution issue [Not Recovered/Not Resolved]
  - Drug effect incomplete [Not Recovered/Not Resolved]

NARRATIVE: CASE EVENT DATE: 20150412
